FAERS Safety Report 24859719 (Version 2)
Quarter: 2025Q1

REPORT INFORMATION
  Report Type: Spontaneous
  Country: US (occurrence: US)
  Receive Date: 20250119
  Receipt Date: 20250222
  Transmission Date: 20250409
  Serious: Yes (Other)
  Sender: SANOFI AVENTIS
  Company Number: US-SA-2025SA013531

PATIENT
  Age: 66 Year
  Sex: Male

DRUGS (2)
  1. JEVTANA [Suspect]
     Active Substance: CABAZITAXEL
     Indication: Hormone-refractory prostate cancer
     Dosage: 31 MG, Q3W
     Route: 042
  2. JEVTANA [Suspect]
     Active Substance: CABAZITAXEL
     Dosage: 31 MG, Q4W
     Route: 042

REACTIONS (3)
  - Pancytopenia [Unknown]
  - Blood electrolytes abnormal [Unknown]
  - Off label use [Unknown]
